FAERS Safety Report 21546058 (Version 1)
Quarter: 2022Q4

REPORT INFORMATION
  Report Type: Spontaneous
  Country: US (occurrence: US)
  Receive Date: 20221103
  Receipt Date: 20221103
  Transmission Date: 20230113
  Serious: Yes (Life-Threatening, Hospitalization, Other)
  Sender: FDA-Public Use
  Company Number: US-LUPIN PHARMACEUTICALS INC.-2022-12732

PATIENT
  Age: 40 Year
  Sex: Female

DRUGS (1)
  1. AMLODIPINE [Suspect]
     Active Substance: AMLODIPINE BESYLATE
     Indication: Product used for unknown indication
     Dosage: UNK INGESTED 80-90 TABLETS OF AMLODIPINE
     Route: 065

REACTIONS (4)
  - Cardiogenic shock [Unknown]
  - Distributive shock [Unknown]
  - Toxicity to various agents [Unknown]
  - Intentional overdose [Unknown]
